FAERS Safety Report 11700516 (Version 1)
Quarter: 2015Q4

REPORT INFORMATION
  Report Type: Spontaneous
  Country: US (occurrence: US)
  Receive Date: 20151105
  Receipt Date: 20151105
  Transmission Date: 20160304
  Serious: Yes (Hospitalization)
  Sender: FDA-Public Use
  Company Number: US-ACTAVIS-2015-23205

PATIENT
  Age: 83 Year
  Sex: Male

DRUGS (3)
  1. CARBIDOPA/LEVODOPA (AELLC) [Suspect]
     Active Substance: CARBIDOPA\LEVODOPA
     Indication: PARKINSON^S DISEASE
     Dosage: 1 DF, THREE TIMES DAILY
     Route: 048
     Dates: start: 20150930
  2. LISINOPRIL. [Concomitant]
     Active Substance: LISINOPRIL
     Indication: CARDIAC DISORDER
     Dosage: 1 DF, DAILY
     Route: 048
  3. PTU [Concomitant]
     Active Substance: PROPYLTHIOURACIL
     Indication: HYPERTHYROIDISM
     Dosage: 1 DF, THREE TIMES DAILY
     Route: 048

REACTIONS (7)
  - Scratch [Recovering/Resolving]
  - Impulsive behaviour [Not Recovered/Not Resolved]
  - Abnormal behaviour [Not Recovered/Not Resolved]
  - Pain in extremity [Recovering/Resolving]
  - Subdural haematoma [Recovering/Resolving]
  - Fall [Recovered/Resolved]
  - Hallucination [Not Recovered/Not Resolved]

NARRATIVE: CASE EVENT DATE: 20151004
